FAERS Safety Report 7570275 (Version 10)
Quarter: 2013Q1

REPORT INFORMATION
  Report Type: Spontaneous
  Country: US (occurrence: US)
  Receive Date: 20100901
  Receipt Date: 20130312
  Transmission Date: 20140127
  Serious: Yes (Hospitalization, Other)
  Sender: FDA-Public Use
  Company Number: US-US-EMD SERONO, INC.-7015787

PATIENT
  Age: 56 None
  Sex: Female
  Weight: 71 kg

DRUGS (14)
  1. REBIF [Suspect]
     Indication: MULTIPLE SCLEROSIS
     Route: 058
     Dates: start: 20080125
  2. TYLENOL [Concomitant]
     Indication: PREMEDICATION
  3. POTASSIUM [Concomitant]
     Indication: BLOOD POTASSIUM DECREASED
     Dates: start: 2003
  4. HYDROCHLOROTHIAZIDE [Concomitant]
     Indication: HYPERTENSION
  5. ALPRAZOLAM [Concomitant]
     Indication: MULTIPLE SCLEROSIS
  6. AMANTADINE [Concomitant]
     Indication: MULTIPLE SCLEROSIS
  7. LYRICA [Concomitant]
     Indication: PAIN IN EXTREMITY
  8. CYMBALTA [Concomitant]
     Indication: PAIN IN EXTREMITY
  9. TIZANIDINE [Concomitant]
     Indication: MYALGIA
  10. TIZANIDINE [Concomitant]
     Indication: INSOMNIA
  11. VITAMIN B [Concomitant]
     Indication: PRODUCT USED FOR UNKNOWN INDICATION
  12. VITAMIN D [Concomitant]
     Indication: PRODUCT USED FOR UNKNOWN INDICATION
  13. ATENOLOL [Concomitant]
     Indication: PRODUCT USED FOR UNKNOWN INDICATION
  14. AMLODIPINE [Concomitant]
     Indication: PRODUCT USED FOR UNKNOWN INDICATION

REACTIONS (14)
  - Renal failure [Recovering/Resolving]
  - Optic neuritis [Unknown]
  - Umbilical hernia [Unknown]
  - Blood pressure decreased [Unknown]
  - Loss of consciousness [Unknown]
  - Head injury [Unknown]
  - Fall [Unknown]
  - Hypertension [Recovering/Resolving]
  - Crying [Recovering/Resolving]
  - Tremor [Unknown]
  - Alopecia [Unknown]
  - Neuralgia [Not Recovered/Not Resolved]
  - Chills [Recovered/Resolved]
  - Pain [Not Recovered/Not Resolved]
